FAERS Safety Report 8062948 (Version 3)
Quarter: 2012Q4

REPORT INFORMATION
  Report Type: Spontaneous
  Country: US (occurrence: None)
  Receive Date: 20110721
  Receipt Date: 20121220
  Transmission Date: 20130627
  Serious: Yes (Other)
  Sender: FDA-Public Use
  Company Number: 2011-295

PATIENT
  Age: 41 Year
  Sex: Female
  Weight: 75 kg

DRUGS (11)
  1. PRIALT [Suspect]
     Indication: FEMORAL NERVE INJURY
     Dosage: UG, ONCE/HOUR, INTRATHECAL; 0.05 UG, ONCE/HOUR, INTRATHECAL
     Route: 037
     Dates: start: 20100222
  2. PRIALT [Suspect]
     Indication: PAIN IN LIMB
     Dosage: UG, ONCE/HOUR, INTRATHECAL; 0.05 UG, ONCE/HOUR, INTRATHECAL
     Route: 037
     Dates: start: 20100222
  3. PRIALT [Suspect]
     Indication: NEURALGIA
     Dosage: UG, ONCE/HOUR, INTRATHECAL; 0.05 UG, ONCE/HOUR, INTRATHECAL
     Route: 037
     Dates: start: 20100222
  4. PRIALT [Suspect]
     Indication: FEMORAL NERVE INJURY
     Dosage: UG, ONCE/HOUR, INTRATHECAL; 0.05 UG, ONCE/HOUR, INTRATHECAL
     Route: 037
     Dates: end: 20100324
  5. PRIALT [Suspect]
     Indication: PAIN IN LIMB
     Dosage: UG, ONCE/HOUR, INTRATHECAL; 0.05 UG, ONCE/HOUR, INTRATHECAL
     Route: 037
     Dates: end: 20100324
  6. PRIALT [Suspect]
     Indication: NEURALGIA
     Dosage: UG, ONCE/HOUR, INTRATHECAL; 0.05 UG, ONCE/HOUR, INTRATHECAL
     Route: 037
     Dates: end: 20100324
  7. BUPIVACAINE HYDROCHLORIDE [Suspect]
     Dosage: MG, ONCE/HOUR, INTRATHECAL
     Route: 037
  8. MORPHINE SULFATE [Suspect]
     Dosage: MG, ONCE/HOUR, INTRATHECAL
     Route: 037
  9. DILAUDID [Suspect]
     Dosage: MG, ONCE/HOUR, INTRATHECAL
     Route: 037
  10. BETA BLOCKING AGENTS [Concomitant]
  11. FENTANYL [Concomitant]

REACTIONS (3)
  - Chest pain [None]
  - Dyspnoea [None]
  - Vomiting [None]
